FAERS Safety Report 9409919 (Version 1)
Quarter: 2013Q3

REPORT INFORMATION
  Report Type: Spontaneous
  Country: US (occurrence: US)
  Receive Date: 20130719
  Receipt Date: 20130719
  Transmission Date: 20140515
  Serious: Yes (Hospitalization)
  Sender: FDA-Public Use
  Company Number: US-FRI-1000046841

PATIENT
  Age: 66 Year
  Sex: Female

DRUGS (6)
  1. BYSTOLIC [Suspect]
  2. TUMS E-X [Suspect]
     Indication: ABDOMINAL DISCOMFORT
     Dates: start: 20130610
  3. SYNTHROID [Suspect]
  4. JANUMET [Suspect]
  5. ASPIRIN [Suspect]
  6. MULTIVITAMIN [Suspect]

REACTIONS (9)
  - Convulsion [Recovered/Resolved]
  - Loss of consciousness [Recovered/Resolved]
  - Immobile [Recovered/Resolved]
  - Speech disorder [Recovered/Resolved]
  - Headache [Recovering/Resolving]
  - Electroencephalogram abnormal [Unknown]
  - Nuclear magnetic resonance imaging abnormal [Unknown]
  - Cerebral cyst [Unknown]
  - Drug interaction [Recovered/Resolved]
